FAERS Safety Report 21102486 (Version 1)
Quarter: 2022Q3

REPORT INFORMATION
  Report Type: Spontaneous
  Country: TW (occurrence: TW)
  Receive Date: 20220719
  Receipt Date: 20220719
  Transmission Date: 20221027
  Serious: Yes (Hospitalization, Other)
  Sender: FDA-Public Use
  Company Number: TW-MLMSERVICE-20220706-3621292-1

PATIENT
  Age: 39 Year
  Sex: Male

DRUGS (3)
  1. PREZCOBIX [Suspect]
     Active Substance: COBICISTAT\DARUNAVIR ETHANOLATE
     Indication: HIV infection
     Dosage: 800/150 MG
     Route: 048
  2. ERGOTAMINE TARTRATE [Interacting]
     Active Substance: ERGOTAMINE TARTRATE
     Indication: Migraine
     Route: 065
  3. DOLUTEGRAVIR [Suspect]
     Active Substance: DOLUTEGRAVIR
     Indication: HIV infection
     Route: 065

REACTIONS (7)
  - Cardiogenic shock [Recovered/Resolved]
  - Arteriospasm coronary [Recovered/Resolved]
  - Ergot poisoning [Recovered/Resolved]
  - Ventricular fibrillation [Unknown]
  - Pulseless electrical activity [Unknown]
  - Dyskinesia [Unknown]
  - Drug interaction [Unknown]
